FAERS Safety Report 19724944 (Version 2)
Quarter: 2021Q3

REPORT INFORMATION
  Report Type: Spontaneous
  Country: US (occurrence: US)
  Receive Date: 20210819
  Receipt Date: 20210826
  Transmission Date: 20211014
  Serious: Yes (Life-Threatening, Hospitalization)
  Sender: FDA-Public Use
  Company Number: US-TEVA-2021-US-1942408

PATIENT
  Age: 71 Year
  Sex: Male

DRUGS (9)
  1. VASOPRESSIN. [Suspect]
     Active Substance: VASOPRESSIN
     Indication: VASOPLEGIA SYNDROME
     Dosage: HE REQUIRED BOLUSES OF VASOPRESSOR BEFORE INITIATION OF CPB FOR A TOTAL OF 2 UNITS OF VASOPRESSIN
     Route: 050
  2. VASOPRESSIN. [Suspect]
     Active Substance: VASOPRESSIN
     Route: 050
  3. CALCIUM CHLORIDE. [Suspect]
     Active Substance: CALCIUM CHLORIDE
     Indication: VASOPLEGIA SYNDROME
     Route: 065
  4. VASOPRESSIN. [Suspect]
     Active Substance: VASOPRESSIN
     Route: 050
  5. PHENYLEPHRINE [Suspect]
     Active Substance: PHENYLEPHRINE HYDROCHLORIDE
     Indication: VASOPLEGIA SYNDROME
     Dosage: HE REQUIRED BOLUSES OF VASOPRESSOR BEFORE INITIATION OF CPB FOR A TOTAL 200 MCG OF PHENYLEPHRINE
     Route: 050
  6. EPINEPHRINE. [Suspect]
     Active Substance: EPINEPHRINE
     Route: 050
  7. VASOPRESSIN. [Suspect]
     Active Substance: VASOPRESSIN
     Route: 050
  8. NOREPINEPHRINE. [Suspect]
     Active Substance: NOREPINEPHRINE
     Indication: VASOPLEGIA SYNDROME
     Route: 050
  9. EPINEPHRINE. [Suspect]
     Active Substance: EPINEPHRINE
     Indication: VASOPLEGIA SYNDROME
     Dosage: REQUIRED BOLUSES OF VASOPRESSOR BEFORE INITIATION OF CPB FOR A TOTAL OF 20 MG OF EPINEPHRINE
     Route: 050

REACTIONS (1)
  - Drug ineffective [Unknown]
